FAERS Safety Report 6965654-4 (Version None)
Quarter: 2010Q3

REPORT INFORMATION
  Report Type: 
  Country: None (occurrence: None)
  Receive Date: 20100903
  Receipt Date: 20100826
  Transmission Date: 20110219
  Serious: No
  Sender: FDA-Public Use
  Company Number: JP-ROCHE-707079

PATIENT
  Sex: Male

DRUGS (3)
  1. CAPECITABINE [Suspect]
     Indication: COLON CANCER
     Dosage: DRUG REPORTED AS XELODA 300(CAPECITABINE)
     Route: 048
     Dates: start: 20090630, end: 20090713
  2. CAPECITABINE [Suspect]
     Dosage: DRUG REPORTED AS XELODA 300(CAPECITABINE)
     Route: 048
     Dates: start: 20090722, end: 20090804
  3. CAPECITABINE [Suspect]
     Dosage: DRUG REPORTED AS XELODA 300(CAPECITABINE)
     Route: 048
     Dates: start: 20090811, end: 20090824

REACTIONS (1)
  - INTESTINAL OBSTRUCTION [None]
